FAERS Safety Report 4450548-9 (Version None)
Quarter: 2004Q3

REPORT INFORMATION
  Report Type: 
  Country: None (occurrence: None)
  Receive Date: 20040913
  Receipt Date: 20040628
  Transmission Date: 20050211
  Serious: No
  Sender: FDA-Public Use
  Company Number: 2004-BP-05136BP(0)

PATIENT
  Age: 55 Year
  Sex: Female

DRUGS (5)
  1. SPIRIVA [Suspect]
     Indication: ASTHMA
     Dosage: 18 MCG (18 MCG), IH
     Route: 055
     Dates: start: 20040628
  2. DUONEB [Concomitant]
  3. PULMICORT [Concomitant]
  4. SINGULAIR [Concomitant]
  5. PROVENTIL (SALBUTAMOL SULFATE) [Concomitant]

REACTIONS (3)
  - GLOSSODYNIA [None]
  - PARAESTHESIA ORAL [None]
  - TONGUE DISCOLOURATION [None]
